FAERS Safety Report 5161011-4 (Version None)
Quarter: 2006Q4

REPORT INFORMATION
  Report Type: 
  Country: None (occurrence: None)
  Receive Date: 20061121
  Receipt Date: 20061107
  Transmission Date: 20070319
  Serious: Yes (Hospitalization)
  Sender: FDA-Public Use
  Company Number: 2006139401

PATIENT
  Age: 76 Year
  Sex: Female

DRUGS (6)
  1. ATARAX [Suspect]
     Dosage: 100 MG (1 D), ORAL
     Route: 048
  2. LEVOTHYROXINE SODIUM [Suspect]
     Dosage: 150 MG (1 D), ORAL
     Route: 048
  3. AMOXICILLIN [Suspect]
     Indication: LUNG DISORDER
     Dosage: INTRAVENOUS
     Route: 042
     Dates: start: 20060603, end: 20060605
  4. NOVOMIX (INSULIN ASPART) [Suspect]
  5. NOVORAPID (INSULIN ASPART) [Suspect]
  6. RETINOL (RETINOL) [Suspect]

REACTIONS (12)
  - BLOOD PRESSURE DIASTOLIC DECREASED [None]
  - CHOLESTASIS [None]
  - CONDITION AGGRAVATED [None]
  - DIABETES MELLITUS INSULIN-DEPENDENT [None]
  - FALL [None]
  - IATROGENIC INJURY [None]
  - LUNG DISORDER [None]
  - PRURITUS [None]
  - RASH ERYTHEMATOUS [None]
  - RENAL FAILURE [None]
  - SYNCOPE [None]
  - TREATMENT NONCOMPLIANCE [None]
